FAERS Safety Report 7992877-8 (Version None)
Quarter: 2011Q4

REPORT INFORMATION
  Report Type: 
  Country: None (occurrence: None)
  Receive Date: 20111219
  Receipt Date: 20110705
  Transmission Date: 20120403
  Serious: No
  Sender: FDA-Public Use
  Company Number: US-ASTRAZENECA-2009SE09731

PATIENT
  Age: 90 Year
  Sex: Female

DRUGS (3)
  1. OTHER MEDICATION [Interacting]
     Route: 065
  2. CRESTOR [Suspect]
     Route: 048
  3. CRESTOR [Interacting]
     Route: 048

REACTIONS (3)
  - DRUG INTERACTION [None]
  - MALAISE [None]
  - MYALGIA [None]
